FAERS Safety Report 6497859-3 (Version None)
Quarter: 2009Q4

REPORT INFORMATION
  Report Type: 
  Country: None (occurrence: None)
  Receive Date: 20091215
  Receipt Date: 20091214
  Transmission Date: 20100525
  Serious: Yes (Hospitalization, Other)
  Sender: FDA-Public Use
  Company Number: ES-ROXANE LABORATORIES, INC.-2009-RO-01252RO

PATIENT
  Age: 39 Year
  Sex: Male

DRUGS (3)
  1. AZATHIOPRINE [Suspect]
     Indication: CROHN'S DISEASE
  2. PEG-INTRON [Suspect]
     Indication: HEPATITIS C
     Dates: start: 20081201
  3. RIBAVIRIN [Suspect]
     Indication: HEPATITIS C
     Dosage: 800 MG
     Dates: start: 20081201

REACTIONS (2)
  - HEPATITIS C [None]
  - PANCYTOPENIA [None]
